FAERS Safety Report 5884294-1 (Version None)
Quarter: 2008Q3

REPORT INFORMATION
  Report Type: 
  Country: None (occurrence: None)
  Receive Date: 20080915
  Receipt Date: 20080909
  Transmission Date: 20090109
  Serious: Yes (Other)
  Sender: FDA-Public Use
  Company Number: US-ASTRAZENECA-2008UW18671

PATIENT
  Age: 76 Year
  Sex: Male

DRUGS (10)
  1. CRESTOR [Suspect]
     Indication: BLOOD CHOLESTEROL INCREASED
     Route: 048
     Dates: start: 20060101
  2. COUMADIN [Suspect]
  3. ASPIRIN [Suspect]
     Dosage: 325 MG
  4. ASPIRIN [Suspect]
     Dosage: 81 MG
  5. TOPROL-XL [Concomitant]
  6. NORVASC [Concomitant]
  7. PROTONIX [Concomitant]
  8. ASCORBIC ACID [Concomitant]
  9. IRON [Concomitant]
  10. FLOMAX [Concomitant]

REACTIONS (3)
  - GASTRIC HAEMORRHAGE [None]
  - MYOCARDIAL INFARCTION [None]
  - TRANSIENT ISCHAEMIC ATTACK [None]
